FAERS Safety Report 5928509-X (Version None)
Quarter: 2008Q4

REPORT INFORMATION
  Report Type: 
  Country: None (occurrence: None)
  Receive Date: 20081023
  Receipt Date: 20081014
  Transmission Date: 20090506
  Serious: Yes (Other)
  Sender: FDA-Public Use
  Company Number: US-WATSON-2008-06165

PATIENT
  Sex: Female

DRUGS (1)
  1. DOXYCYCLINE HYCLATE [Suspect]
     Indication: ACNE
     Dosage: UNK
     Route: 065

REACTIONS (8)
  - ABDOMINAL TENDERNESS [None]
  - DYSPHAGIA [None]
  - INFLAMMATORY BOWEL DISEASE [None]
  - NAUSEA [None]
  - OESOPHAGEAL PAIN [None]
  - OESOPHAGEAL ULCER [None]
  - OESOPHAGITIS [None]
  - PAIN [None]
